FAERS Safety Report 7261991-7 (Version None)
Quarter: 2011Q1

REPORT INFORMATION
  Report Type: 
  Country: None (occurrence: None)
  Receive Date: 20110130
  Receipt Date: 20101104
  Transmission Date: 20110831
  Serious: No
  Sender: FDA-Public Use
  Company Number: US-ABBOTT-10P-163-0683366-00

PATIENT
  Age: 42 Year
  Sex: Male

DRUGS (5)
  1. FENTANYL [Concomitant]
     Indication: MUSCULOSKELETAL DISCOMFORT
     Dosage: PATCH 100 MCG /HR
  2. HUMIRA [Suspect]
     Indication: ANKYLOSING SPONDYLITIS
     Dates: start: 20100601
  3. VENLAFAXINE [Concomitant]
     Indication: DEPRESSION
     Dosage: 2 TABLETS DAILY
     Route: 048
  4. OXYCODONE [Concomitant]
     Indication: MUSCULOSKELETAL DISCOMFORT
     Dosage: 10/650 MG DAILY
     Route: 048
  5. MIRTAZAPINE [Concomitant]
     Indication: DEPRESSION
     Dosage: 2 TABLETS EACH NIGHT
     Route: 048

REACTIONS (5)
  - UPPER RESPIRATORY TRACT CONGESTION [None]
  - VOMITING [None]
  - INJECTION SITE HAEMATOMA [None]
  - HEADACHE [None]
  - NAUSEA [None]
